FAERS Safety Report 22256519 (Version 1)
Quarter: 2023Q2

REPORT INFORMATION
  Report Type: Spontaneous
  Country: CN (occurrence: CN)
  Receive Date: 20230426
  Receipt Date: 20230426
  Transmission Date: 20230722
  Serious: Yes (Hospitalization, Other)
  Sender: FDA-Public Use
  Company Number: CN-009507513-2304CHN008875

PATIENT
  Age: 62 Year
  Sex: Male
  Weight: 58.5 kg

DRUGS (6)
  1. KEYTRUDA [Suspect]
     Active Substance: PEMBROLIZUMAB
     Indication: Squamous cell carcinoma of lung
     Dosage: 200 MG, QW, IV DRIP, D1, D8
     Route: 041
     Dates: start: 20230317, end: 20230324
  2. CARBOPLATIN [Suspect]
     Active Substance: CARBOPLATIN
     Indication: Squamous cell carcinoma of lung
     Dosage: 340 MG, QW, IV DRIP, D1, D8
     Route: 041
     Dates: start: 20230317, end: 20230324
  3. PACLITAXEL [Suspect]
     Active Substance: PACLITAXEL
     Indication: Squamous cell carcinoma of lung
     Dosage: 150 MG, QW, IV DRIP, D1, D8
     Route: 041
     Dates: start: 20230317, end: 20230324
  4. SODIUM CHLORIDE [Concomitant]
     Active Substance: SODIUM CHLORIDE
     Indication: Squamous cell carcinoma of lung
     Dosage: 100 ML, QW, IV DRIP, D1, D8
     Route: 041
     Dates: start: 20230317, end: 20230324
  5. SODIUM CHLORIDE [Concomitant]
     Active Substance: SODIUM CHLORIDE
     Dosage: 100 ML, QW, IV DRIP, D1, D8
     Route: 041
     Dates: start: 20230317, end: 20230324
  6. DEXTROSE [Concomitant]
     Active Substance: DEXTROSE\DEXTROSE MONOHYDRATE
     Indication: Squamous cell carcinoma of lung
     Dosage: 500 ML, QW, IV DRIP, D1, D8
     Route: 041
     Dates: start: 20230317, end: 20230324

REACTIONS (2)
  - Myelosuppression [Recovering/Resolving]
  - Inappropriate schedule of product administration [Unknown]

NARRATIVE: CASE EVENT DATE: 20230324
